FAERS Safety Report 16818342 (Version 2)
Quarter: 2020Q3

REPORT INFORMATION
  Report Type: Report from Study
  Country: US (occurrence: US)
  Receive Date: 20190917
  Receipt Date: 20200724
  Transmission Date: 20201102
  Serious: No
  Sender: FDA-Public Use
  Company Number: US-SA-2019SA256783

PATIENT

DRUGS (1)
  1. DUPILUMAB [Suspect]
     Active Substance: DUPILUMAB
     Indication: ECZEMA
     Dosage: UNK UNK, QOW
     Dates: start: 201906

REACTIONS (3)
  - Product use issue [Unknown]
  - Menstrual disorder [Unknown]
  - Arthralgia [Recovering/Resolving]

NARRATIVE: CASE EVENT DATE: 2019
